FAERS Safety Report 16859996 (Version 3)
Quarter: 2021Q1

REPORT INFORMATION
  Report Type: Spontaneous
  Country: US (occurrence: US)
  Receive Date: 20190927
  Receipt Date: 20210216
  Transmission Date: 20210419
  Serious: Yes (Hospitalization)
  Sender: FDA-Public Use
  Company Number: US-HORIZON-PRO-0205-2019

PATIENT

DRUGS (8)
  1. POLY?CITRA K [Concomitant]
  2. CARNITINE [Concomitant]
     Active Substance: CARNITINE
  3. PROCYSBI [Suspect]
     Active Substance: CYSTEAMINE BITARTRATE
     Dosage: 75 MG, BID
     Route: 048
     Dates: start: 20190418
  4. PROCYSBI [Suspect]
     Active Substance: CYSTEAMINE BITARTRATE
     Dosage: 100MG IN THE MORNING AND 100MG IN THE EVENING VIA G?TUBE 2 SEPARATED DOSES
     Dates: start: 201903
  5. ZOFRAN [Concomitant]
     Active Substance: ONDANSETRON HYDROCHLORIDE
     Dosage: AS NEEDED
  6. INDOCIN [Concomitant]
     Active Substance: INDOMETHACIN
  7. IRON SUPPLEMENTS [Concomitant]
     Active Substance: IRON
  8. NEUTRA?PHOS [Concomitant]
     Active Substance: POTASSIUM PHOSPHATE, DIBASIC\POTASSIUM PHOSPHATE, MONOBASIC\SODIUM PHOSPHATE, DIBASIC\SODIUM PHOSPHATE, MONOBASIC

REACTIONS (5)
  - No adverse event [Recovered/Resolved]
  - Product communication issue [Recovered/Resolved]
  - Incorrect dose administered [Recovered/Resolved]
  - Hospitalisation [Unknown]
  - Vomiting [Recovered/Resolved]
